FAERS Safety Report 4515804-4 (Version None)
Quarter: 2004Q4

REPORT INFORMATION
  Report Type: 
  Country: None (occurrence: None)
  Receive Date: 20041201
  Receipt Date: 20041122
  Transmission Date: 20050328
  Serious: Yes (Life-Threatening, Hospitalization, Disabling)
  Sender: FDA-Public Use
  Company Number: US-MERCK-0411USA03598

PATIENT
  Age: 75 Year
  Sex: Female

DRUGS (3)
  1. VIOXX [Suspect]
     Indication: ARTHRITIS
     Route: 048
     Dates: end: 20031001
  2. PREMARIN [Concomitant]
     Route: 065
  3. [COMPOSITION UNSPECIFIED] [Concomitant]
     Route: 065

REACTIONS (1)
  - HAEMATEMESIS [None]
